FAERS Safety Report 8760260 (Version 2)
Quarter: 2013Q4

REPORT INFORMATION
  Report Type: Spontaneous
  Country: US (occurrence: US)
  Receive Date: 20120830
  Receipt Date: 20131031
  Transmission Date: 20140711
  Serious: Yes (Hospitalization)
  Sender: FDA-Public Use
  Company Number: US-009507513-1208USA011592

PATIENT
  Sex: Male

DRUGS (6)
  1. JANUMET [Suspect]
     Indication: TYPE 2 DIABETES MELLITUS
     Dosage: UNK
     Route: 048
     Dates: start: 20110524, end: 20120719
  2. LISINOPRIL [Concomitant]
  3. TOPROL XL TABLETS [Concomitant]
  4. ASPIRIN [Concomitant]
  5. IRON (UNSPECIFIED) [Concomitant]
  6. CRESTOR [Concomitant]

REACTIONS (1)
  - Cholelithiasis [Recovering/Resolving]
